FAERS Safety Report 8880548 (Version 2)
Quarter: 2012Q4

REPORT INFORMATION
  Report Type: 
  Country: US (occurrence: US)
  Receive Date: 20121101
  Receipt Date: 20121121
  Transmission Date: 20130627
  Serious: No
  Sender: FDA-Public Use
  Company Number: US-TEVA-366273USA

PATIENT
  Sex: Female
  Weight: 63.56 kg

DRUGS (2)
  1. QNASL [Suspect]
     Indication: SEASONAL ALLERGY
     Dosage: 320 Microgram Daily;
     Dates: start: 201206
  2. QNASL [Suspect]
     Indication: RHINITIS PERENNIAL

REACTIONS (1)
  - Drug effect decreased [Not Recovered/Not Resolved]
